FAERS Safety Report 4824482-6 (Version None)
Quarter: 2005Q4

REPORT INFORMATION
  Report Type: 
  Country: None (occurrence: None)
  Receive Date: 20051108
  Receipt Date: 20051021
  Transmission Date: 20060501
  Serious: Yes (Death)
  Sender: FDA-Public Use
  Company Number: GBS051018851

PATIENT
  Age: 75 Year
  Sex: Male

DRUGS (2)
  1. GEMZAR [Suspect]
  2. CARBOPLATIN [Concomitant]

REACTIONS (1)
  - NEUTROPENIC SEPSIS [None]
